FAERS Safety Report 20470166 (Version 1)
Quarter: 2022Q1

REPORT INFORMATION
  Report Type: Spontaneous
  Country: US (occurrence: US)
  Receive Date: 20220214
  Receipt Date: 20220214
  Transmission Date: 20220423
  Serious: No
  Sender: FDA-Public Use
  Company Number: US-AMGEN-USASP2022023328

PATIENT
  Sex: Female

DRUGS (1)
  1. ENBREL [Suspect]
     Active Substance: ETANERCEPT
     Indication: Arthropathy
     Dosage: 50 MILLIGRAM
     Route: 065

REACTIONS (3)
  - Grip strength decreased [Not Recovered/Not Resolved]
  - Off label use [Unknown]
  - COVID-19 [Not Recovered/Not Resolved]
